FAERS Safety Report 4401969-1 (Version None)
Quarter: 2004Q3

REPORT INFORMATION
  Report Type: 
  Country: None (occurrence: None)
  Receive Date: 20040714
  Receipt Date: 20040623
  Transmission Date: 20050211
  Serious: Yes (Hospitalization, Other)
  Sender: FDA-Public Use
  Company Number: USA040670925

PATIENT
  Age: 66 Year
  Sex: Female
  Weight: 64 kg

DRUGS (1)
  1. HUMALOG [Suspect]
     Indication: DIABETES MELLITUS
     Dates: start: 20010101

REACTIONS (8)
  - INJECTION SITE MASS [None]
  - INJECTION SITE PAIN [None]
  - MEDICATION ERROR [None]
  - METASTASES TO LUNG [None]
  - PHARMACEUTICAL PRODUCT COMPLAINT [None]
  - RENAL CELL CARCINOMA STAGE UNSPECIFIED [None]
  - THERAPY NON-RESPONDER [None]
  - WHITE BLOOD CELL COUNT DECREASED [None]
